FAERS Safety Report 7217111-8 (Version None)
Quarter: 2011Q1

REPORT INFORMATION
  Report Type: 
  Country: None (occurrence: None)
  Receive Date: 20110110
  Receipt Date: 20101231
  Transmission Date: 20110831
  Serious: Yes (Hospitalization)
  Sender: FDA-Public Use
  Company Number: FR-SANOFI-AVENTIS-2011SA000319

PATIENT
  Age: 31 Year
  Sex: Female

DRUGS (4)
  1. NOZINAN [Suspect]
     Indication: DELUSIONAL DISORDER, UNSPECIFIED TYPE
     Route: 048
     Dates: start: 20101123, end: 20101202
  2. HALDOL [Suspect]
     Indication: DELUSIONAL DISORDER, UNSPECIFIED TYPE
     Route: 048
     Dates: start: 20101119, end: 20101204
  3. VALIUM [Suspect]
     Indication: DELUSIONAL DISORDER, UNSPECIFIED TYPE
     Route: 048
     Dates: start: 20101130, end: 20101203
  4. LOVENOX [Suspect]
     Dates: start: 20101202, end: 20101206

REACTIONS (1)
  - NEUTROPENIA [None]
